FAERS Safety Report 5206737-9 (Version None)
Quarter: 2006Q4

REPORT INFORMATION
  Report Type: 
  Country: None (occurrence: None)
  Receive Date: 20061030
  Receipt Date: 20060920
  Transmission Date: 20070319
  Serious: No
  Sender: FDA-Public Use
  Company Number: 257114

PATIENT
  Age: 33 Year
  Sex: Female

DRUGS (1)
  1. LEVEMIR [Suspect]
     Indication: GESTATIONAL DIABETES
     Dosage: 15 IU, QD, SUBCUTANEOUS
     Route: 058
     Dates: start: 20060919, end: 20060920

REACTIONS (2)
  - INJECTION SITE MASS [None]
  - INJECTION SITE PRURITUS [None]
